FAERS Safety Report 13695642 (Version 3)
Quarter: 2017Q3

REPORT INFORMATION
  Report Type: Spontaneous
  Country: JP (occurrence: JP)
  Receive Date: 20170627
  Receipt Date: 20170801
  Transmission Date: 20171127
  Serious: Yes (Hospitalization)
  Sender: FDA-Public Use
  Company Number: JP-MEDA-2017060046

PATIENT
  Age: 76 Year
  Sex: Female

DRUGS (18)
  1. VOGLIBOSE OD [Concomitant]
     Active Substance: VOGLIBOSE
     Route: 048
     Dates: end: 20170606
  2. THYRADIN S [Concomitant]
     Active Substance: LEVOTHYROXINE SODIUM
     Dosage: 50 ?G MICROGRAM(S) IN THE MORNING + 25 ?G MICROGRAM(S) IN THE EVENING
     Route: 048
  3. SENNARIDE 24 MG [Concomitant]
     Route: 048
  4. OLMETEC OD 20 MG [Concomitant]
     Route: 048
  5. CARVEDILOL 5 MG [Concomitant]
     Route: 048
  6. BEZAFIBRATE 200 MG [Concomitant]
  7. FRUSEMIDE 20 MG [Concomitant]
     Route: 048
  8. TRAZENTA [Concomitant]
     Active Substance: LINAGLIPTIN
     Route: 048
     Dates: end: 20170606
  9. FAMOTIDINE 10 MG [Concomitant]
     Route: 048
  10. KETOPROFEN. [Concomitant]
     Active Substance: KETOPROFEN
     Route: 061
  11. GLIMEPIRIDE 2 MG [Suspect]
     Active Substance: GLIMEPIRIDE
     Route: 048
     Dates: end: 20170606
  12. LUPRAC [Suspect]
     Active Substance: TORSEMIDE
     Route: 048
  13. LUPRAC [Suspect]
     Active Substance: TORSEMIDE
     Route: 048
  14. CANAGLU 100 MG [Suspect]
     Active Substance: CANAGLIFLOZIN
     Indication: TYPE 2 DIABETES MELLITUS
     Route: 048
     Dates: start: 20170525, end: 20170606
  15. BAYASPIRIN 100 MG [Concomitant]
     Active Substance: ASPIRIN
     Route: 048
  16. WARFARIN 1.5 MG [Concomitant]
     Route: 048
  17. CORTONE 25 MG [Concomitant]
     Route: 048
  18. ZETIA 10 MG [Concomitant]
     Route: 048

REACTIONS (3)
  - Urinary tract infection [Recovered/Resolved]
  - Hypoglycaemia [Recovered/Resolved]
  - Dehydration [Recovered/Resolved]

NARRATIVE: CASE EVENT DATE: 20170605
